FAERS Safety Report 15597909 (Version 4)
Quarter: 2019Q3

REPORT INFORMATION
  Report Type: Report from Study
  Country: JP (occurrence: JP)
  Receive Date: 20181108
  Receipt Date: 20190702
  Transmission Date: 20191004
  Serious: Yes (Hospitalization)
  Sender: FDA-Public Use
  Company Number: JP-DSJP-DSJ-2018-100863

PATIENT

DRUGS (24)
  1. PSYCHOTROPIC AGENTS [Concomitant]
     Active Substance: UNSPECIFIED INGREDIENT
     Indication: PRODUCT USED FOR UNKNOWN INDICATION
  2. EDOXABAN OD [Suspect]
     Active Substance: EDOXABAN TOSYLATE
     Indication: ATRIAL FIBRILLATION
     Dosage: 30 MG, QD
     Route: 048
     Dates: start: 20180302
  3. LYRICA [Suspect]
     Active Substance: PREGABALIN
     Indication: PRODUCT USED FOR UNKNOWN INDICATION
     Dosage: 25 MG/DAY
     Route: 065
     Dates: start: 20180214
  4. PRIMPERAN [Concomitant]
     Active Substance: METOCLOPRAMIDE HYDROCHLORIDE
     Indication: PRODUCT USED FOR UNKNOWN INDICATION
     Dosage: 15 MG/DAY
     Route: 065
  5. SUCRALFATE. [Concomitant]
     Active Substance: SUCRALFATE
     Indication: PRODUCT USED FOR UNKNOWN INDICATION
     Dosage: 3G/DAY
     Route: 065
  6. PERSANTIN [Concomitant]
     Active Substance: DIPYRIDAMOLE
     Indication: PRODUCT USED FOR UNKNOWN INDICATION
     Dosage: 75 MG/DAY
     Route: 065
  7. URSO [Concomitant]
     Active Substance: URSODIOL
     Indication: PRODUCT USED FOR UNKNOWN INDICATION
     Dosage: 300 MG/DAY
     Route: 065
  8. HYPOCA                             /01301601/ [Concomitant]
     Indication: PRODUCT USED FOR UNKNOWN INDICATION
     Dosage: 10 MG/DAY
     Route: 065
  9. CIBENZOLINE SUCCINATE [Concomitant]
     Active Substance: CIFENLINE SUCCINATE
     Indication: PRODUCT USED FOR UNKNOWN INDICATION
     Dosage: 100 MG/DAY
     Route: 065
  10. AZILVA [Concomitant]
     Active Substance: AZILSARTAN KAMEDOXOMIL
     Indication: PRODUCT USED FOR UNKNOWN INDICATION
     Dosage: 20 MG/DAY
     Route: 065
  11. LIMAPROST ALFADEX [Concomitant]
     Active Substance: LIMAPROST
     Indication: PRODUCT USED FOR UNKNOWN INDICATION
     Dosage: 15?G/DAY
     Route: 065
  12. GASTER [Concomitant]
     Active Substance: FAMOTIDINE
     Indication: PRODUCT USED FOR UNKNOWN INDICATION
     Dosage: 20 MG/DAY
     Route: 065
  13. MAGMITT [Concomitant]
     Active Substance: MAGNESIUM OXIDE
     Indication: PRODUCT USED FOR UNKNOWN INDICATION
     Dosage: 4 G/DAY
     Route: 065
  14. CARDENALIN [Concomitant]
     Active Substance: DOXAZOSIN MESYLATE
     Indication: PRODUCT USED FOR UNKNOWN INDICATION
     Dosage: 1 MG/DAY
     Route: 065
  15. FAMOTIDINE. [Concomitant]
     Active Substance: FAMOTIDINE
     Indication: PRODUCT USED FOR UNKNOWN INDICATION
     Dosage: UNK
     Route: 065
  16. ALPRAZOLAM. [Concomitant]
     Active Substance: ALPRAZOLAM
     Indication: PRODUCT USED FOR UNKNOWN INDICATION
     Dosage: 0.8 MG/DAY
     Route: 065
  17. EDOXABAN [Suspect]
     Active Substance: EDOXABAN TOSYLATE
     Indication: ATRIAL FIBRILLATION
     Dosage: 30 MG, QD
     Route: 048
     Dates: start: 20160617, end: 20180301
  18. NEXIUM [Suspect]
     Active Substance: ESOMEPRAZOLE MAGNESIUM
     Indication: PRODUCT USED FOR UNKNOWN INDICATION
     Dosage: 20 MG, QD
     Route: 048
     Dates: start: 20180203, end: 20180217
  19. BUFFERIN [Suspect]
     Active Substance: ASPIRIN
     Indication: PRODUCT USED FOR UNKNOWN INDICATION
     Dosage: 81 MG/DAY
     Route: 065
  20. DIMETICONE [Concomitant]
     Active Substance: DIMETHICONE
     Indication: PRODUCT USED FOR UNKNOWN INDICATION
     Dosage: 240 MG/DAY
     Route: 065
  21. DIAZEPAM. [Concomitant]
     Active Substance: DIAZEPAM
     Indication: PRODUCT USED FOR UNKNOWN INDICATION
     Dosage: 6 MG/DAY
     Route: 065
  22. NEUROTROPIN                        /00398601/ [Concomitant]
     Active Substance: CYANOCOBALAMIN\LIDOCAINE HYDROCHLORIDE\PYRIDOXINE HYDROCHLORIDE\THIAMINE HYDROCHLORIDE
     Indication: PRODUCT USED FOR UNKNOWN INDICATION
     Dosage: 16 U/DAY
     Route: 065
  23. CELIPROLOL HYDROCHLORIDE [Concomitant]
     Active Substance: CELIPROLOL HYDROCHLORIDE
     Indication: PRODUCT USED FOR UNKNOWN INDICATION
     Dosage: 200 MG/DAY
     Route: 065
  24. FERROUS SULFATE. [Concomitant]
     Active Substance: FERROUS SULFATE
     Indication: PRODUCT USED FOR UNKNOWN INDICATION
     Dosage: 105 MG/DAY
     Route: 065

REACTIONS (15)
  - Sinus arrest [Recovering/Resolving]
  - Vomiting [Recovering/Resolving]
  - Constipation [Recovering/Resolving]
  - Haemorrhage subcutaneous [Recovering/Resolving]
  - Subcutaneous haematoma [Recovering/Resolving]
  - Dizziness [Recovered/Resolved]
  - Pneumonia aspiration [Recovering/Resolving]
  - Nausea [Recovering/Resolving]
  - Fall [Recovering/Resolving]
  - Contusion [Recovering/Resolving]
  - Constipation [Recovering/Resolving]
  - Cataract [Recovering/Resolving]
  - Fall [Recovering/Resolving]
  - Abdominal pain upper [Recovering/Resolving]
  - Neuralgia [Recovering/Resolving]

NARRATIVE: CASE EVENT DATE: 20171106
